FAERS Safety Report 9222599 (Version 1)
Quarter: 2013Q2

REPORT INFORMATION
  Report Type: Spontaneous
  Country: IT (occurrence: IT)
  Receive Date: 20130410
  Receipt Date: 20130410
  Transmission Date: 20140414
  Serious: Yes (Other)
  Sender: FDA-Public Use
  Company Number: IT-ROCHE-1206336

PATIENT
  Age: 77 Year
  Sex: Male

DRUGS (1)
  1. ACTILYSE [Suspect]
     Indication: ISCHAEMIC STROKE
     Dosage: BODY WEIGHT
     Route: 042
     Dates: start: 20110116, end: 20110116

REACTIONS (1)
  - Disease progression [Unknown]
